FAERS Safety Report 17917453 (Version 1)
Quarter: 2020Q2

REPORT INFORMATION
  Report Type: Spontaneous
  Country: DE (occurrence: DE)
  Receive Date: 20200619
  Receipt Date: 20200619
  Transmission Date: 20200714
  Serious: Yes (Hospitalization)
  Sender: FDA-Public Use
  Company Number: DE-009507513-2006DEU005235

PATIENT
  Age: 53 Year
  Sex: Female

DRUGS (3)
  1. MIRTAZAPINE. [Suspect]
     Active Substance: MIRTAZAPINE
     Dosage: 15 MG, 0-0-1-0
  2. OPIPRAMOL HYDROCHLORIDE [Suspect]
     Active Substance: OPIPRAMOL HYDROCHLORIDE
     Dosage: 50 MG, 0-0-1-0
  3. LEVOTHYROXINE SODIUM. [Concomitant]
     Active Substance: LEVOTHYROXINE SODIUM
     Dosage: 125 MCG, 1-0-0-0

REACTIONS (5)
  - Pain [Unknown]
  - Abdominal pain upper [Unknown]
  - Urine abnormality [Unknown]
  - Diarrhoea [Unknown]
  - Jaundice [Unknown]
